FAERS Safety Report 18940246 (Version 1)
Quarter: 2021Q1

REPORT INFORMATION
  Report Type: Spontaneous
  Country: US (occurrence: US)
  Receive Date: 20210224
  Receipt Date: 20210224
  Transmission Date: 20210420
  Serious: Yes (Hospitalization)
  Sender: FDA-Public Use
  Company Number: None

PATIENT
  Age: 67 Year
  Sex: Male
  Weight: 82 kg

DRUGS (2)
  1. ETOPOSIDE (VP?16) [Suspect]
     Active Substance: ETOPOSIDE
     Dates: end: 20181016
  2. CISPLATIN. [Suspect]
     Active Substance: CISPLATIN
     Dates: end: 20181016

REACTIONS (5)
  - Metastasis [None]
  - Metastases to bone [None]
  - Metastases to lymph nodes [None]
  - Metastases to lung [None]
  - Lung adenocarcinoma [None]

NARRATIVE: CASE EVENT DATE: 20210208
